FAERS Safety Report 13115985 (Version 3)
Quarter: 2017Q1

REPORT INFORMATION
  Report Type: Spontaneous
  Country: DE (occurrence: DE)
  Receive Date: 20170116
  Receipt Date: 20170316
  Transmission Date: 20170428
  Serious: Yes (Other)
  Sender: FDA-Public Use
  Company Number: DE-AMGEN-DEUSP2017004378

PATIENT
  Age: 58 Year
  Sex: Female
  Weight: 65 kg

DRUGS (14)
  1. MCP-RATIOPHARM [Concomitant]
     Active Substance: METOCLOPRAMIDE HYDROCHLORIDE
     Dosage: 30 ML, UNK
     Dates: start: 20160623
  2. CODEINUM PHOSPHORICUM FORTE COMPREN [Concomitant]
     Dosage: UNK
     Dates: start: 20160804
  3. NOVAMINSULFON 1 A PHARMA [Concomitant]
     Dosage: UNK
     Dates: start: 20141030
  4. DICLO [Concomitant]
     Active Substance: DICLOFENAC SODIUM
     Dosage: UNK
     Dates: start: 20160530
  5. SALBUTAMOL [Concomitant]
     Active Substance: ALBUTEROL
     Indication: LOCAL SWELLING
     Dosage: UNK
     Dates: start: 20160721
  6. DOXYCYCLIN AL [Concomitant]
     Active Substance: DOXYCYCLINE HYCLATE
     Dosage: UNK
     Dates: start: 20151204
  7. PROLIA [Suspect]
     Active Substance: DENOSUMAB
     Indication: OSTEOPOROSIS
  8. PARACETAMOL [Concomitant]
     Active Substance: ACETAMINOPHEN
     Dosage: UNK
     Dates: start: 20150203
  9. TRAMADOL. [Concomitant]
     Active Substance: TRAMADOL
     Dosage: 100 MG, UNK
     Dates: start: 20161103
  10. PROLIA [Suspect]
     Active Substance: DENOSUMAB
     Indication: HYPERGAMMAGLOBULINAEMIA BENIGN MONOCLONAL
     Dosage: 60 MG, Q6MO
     Route: 058
     Dates: start: 201411, end: 201605
  11. DOCITON [Concomitant]
     Active Substance: PROPRANOLOL HYDROCHLORIDE
     Dosage: UNK
     Dates: start: 20141208
  12. CETIDERM [Concomitant]
     Dosage: 10 MG, UNK
     Dates: start: 20160704
  13. MOMETASONE [Concomitant]
     Active Substance: MOMETASONE
     Dosage: 50 MUG, UNK
     Dates: start: 20160913
  14. TRAMAL LONG [Concomitant]
     Active Substance: TRAMADOL
     Dosage: 50 MG, UNK
     Dates: start: 20160721

REACTIONS (26)
  - Colorectostomy [Unknown]
  - Ear infection [Unknown]
  - Asthma [Recovered/Resolved]
  - Cystitis noninfective [Recovered/Resolved]
  - Heart rate irregular [Unknown]
  - Dysphonia [Unknown]
  - Vomiting [Not Recovered/Not Resolved]
  - Cough [Unknown]
  - Malaise [Not Recovered/Not Resolved]
  - Carpal tunnel syndrome [Unknown]
  - Nasopharyngitis [Unknown]
  - Bronchitis [Recovered/Resolved]
  - Chills [Unknown]
  - Gastrointestinal disorder [Unknown]
  - Hypoaesthesia [Not Recovered/Not Resolved]
  - Pharyngitis [Recovered/Resolved]
  - Cystitis [Unknown]
  - Laryngitis [Recovered/Resolved]
  - Rhinitis [Unknown]
  - Pallor [Unknown]
  - Rectal haemorrhage [Recovered/Resolved]
  - Pain [Recovering/Resolving]
  - Sciatica [Recovered/Resolved]
  - Bone contusion [Unknown]
  - Skin infection [Recovered/Resolved]
  - Otitis media [Recovered/Resolved]

NARRATIVE: CASE EVENT DATE: 20141208
